FAERS Safety Report 10967427 (Version 1)
Quarter: 2015Q1

REPORT INFORMATION
  Report Type: Spontaneous
  Country: US (occurrence: US)
  Receive Date: 20150330
  Receipt Date: 20150330
  Transmission Date: 20150721
  Serious: No
  Sender: FDA-Public Use
  Company Number: US-ASTRAZENECA-2014SE26224

PATIENT
  Age: 59 Year
  Sex: Male
  Weight: 94.3 kg

DRUGS (4)
  1. NEXIUM [Suspect]
     Active Substance: ESOMEPRAZOLE MAGNESIUM
     Indication: GASTROOESOPHAGEAL REFLUX DISEASE
     Route: 048
     Dates: start: 2012
  2. ANGDROGEL TESTOSTERONE CREAM [Concomitant]
     Indication: FLUID REPLACEMENT
     Dosage: 1.62 % 2 PUMPS DAILY
     Route: 048
     Dates: start: 2008
  3. LEVOTHYROXINE [Concomitant]
     Active Substance: LEVOTHYROXINE
     Indication: THYROID DISORDER
     Dosage: 0.05 MCG T-THU-SAT WEEK
     Route: 048
     Dates: start: 2008
  4. LEVOTHYROXINE [Concomitant]
     Active Substance: LEVOTHYROXINE
     Indication: THYROID DISORDER
     Dosage: 0.075 MCG MON AND FR WEEK
     Route: 048
     Dates: start: 2008

REACTIONS (2)
  - Anaemia [Unknown]
  - Blood iron decreased [Unknown]

NARRATIVE: CASE EVENT DATE: 201404
